FAERS Safety Report 6711039-5 (Version None)
Quarter: 2010Q2

REPORT INFORMATION
  Report Type: 
  Country: None (occurrence: None)
  Receive Date: 20100505
  Receipt Date: 20100426
  Transmission Date: 20101027
  Serious: Yes (Other)
  Sender: FDA-Public Use
  Company Number: JP-JNJFOC-20100406851

PATIENT
  Sex: Female

DRUGS (4)
  1. CRAVIT [Suspect]
     Indication: GINGIVITIS
     Route: 048
  2. CRAVIT [Suspect]
     Indication: ANTIBIOTIC PROPHYLAXIS
     Route: 048
  3. LOXONIN [Concomitant]
     Indication: BACK PAIN
     Route: 065
  4. PURSENNID [Concomitant]
     Indication: CONSTIPATION
     Route: 065

REACTIONS (3)
  - APHONIA [None]
  - BLOOD PRESSURE DECREASED [None]
  - DYSPHONIA [None]
